FAERS Safety Report 10180650 (Version 1)
Quarter: 2014Q2

REPORT INFORMATION
  Report Type: Spontaneous
  Country: US (occurrence: US)
  Receive Date: 20140519
  Receipt Date: 20140519
  Transmission Date: 20141212
  Serious: No
  Sender: FDA-Public Use
  Company Number: US-AMGEN INC.-USASP2014021356

PATIENT
  Age: 83 Year
  Sex: Female

DRUGS (4)
  1. PROLIA [Suspect]
     Indication: OSTEOPOROSIS POSTMENOPAUSAL
     Dosage: UNK
     Route: 065
  2. SYNTHROID [Concomitant]
     Dosage: 0.075 MG, UNK
  3. PHENAZOPYRIDINE [Concomitant]
  4. ESCITALOPRAM [Concomitant]
     Dosage: 10 MG, UNK

REACTIONS (5)
  - Arthralgia [Unknown]
  - Back pain [Unknown]
  - Cystitis [Recovered/Resolved]
  - Musculoskeletal pain [Unknown]
  - Pain in extremity [Unknown]
